FAERS Safety Report 17253056 (Version 1)
Quarter: 2020Q1

REPORT INFORMATION
  Report Type: Report from Study
  Country: US (occurrence: US)
  Receive Date: 20200109
  Receipt Date: 20200109
  Transmission Date: 20200409
  Serious: Yes (Hospitalization)
  Sender: FDA-Public Use
  Company Number: NVSC2019US038494

PATIENT
  Sex: Female

DRUGS (3)
  1. INC424A [Suspect]
     Active Substance: RUXOLITINIB
     Indication: OVARIAN EPITHELIAL CANCER
     Dosage: 15 MG, Q12H
     Route: 048
     Dates: start: 20190924, end: 20191104
  2. CARBOPLATIN FOR INJECTION [Suspect]
     Active Substance: CARBOPLATIN
     Indication: OVARIAN EPITHELIAL CANCER
     Dosage: AUC 5 (D1)
     Route: 042
     Dates: start: 20190924, end: 20191015
  3. PACLITAXEL. [Suspect]
     Active Substance: PACLITAXEL
     Indication: OVARIAN EPITHELIAL CANCER
     Dosage: 70 MG/M2 70 MILLIGRAM/SQ. METER (D1, 8, 15)
     Route: 042
     Dates: start: 20190924, end: 20191030

REACTIONS (6)
  - Hyponatraemia [Recovered/Resolved]
  - Electrocardiogram QT prolonged [Recovered/Resolved]
  - Pulmonary embolism [Recovered/Resolved]
  - Pneumonia [Recovered/Resolved]
  - Angina pectoris [Unknown]
  - Hypokalaemia [Recovered/Resolved]

NARRATIVE: CASE EVENT DATE: 20191106
